FAERS Safety Report 21242499 (Version 28)
Quarter: 2024Q3

REPORT INFORMATION
  Report Type: Spontaneous
  Country: GB (occurrence: GB)
  Receive Date: 20220823
  Receipt Date: 20240808
  Transmission Date: 20241017
  Serious: Yes (Hospitalization)
  Sender: ROCHE
  Company Number: None

PATIENT
  Age: 49 Year
  Sex: Male

DRUGS (248)
  1. RITUXIMAB [Suspect]
     Active Substance: RITUXIMAB
     Indication: B-cell lymphoma
     Dosage: UNK, CYCLIC (6 CYCLE, RCHOP CHEMO, SOLUTION FOR INFUSION
     Route: 042
     Dates: end: 20220512
  2. RITUXIMAB [Suspect]
     Active Substance: RITUXIMAB
     Dosage: UNK, CYCLIC (6 CYCLE, RCHOP CHEMO, SOLUTION FOR INFUSION
     Route: 042
     Dates: end: 20220512
  3. RITUXIMAB [Suspect]
     Active Substance: RITUXIMAB
     Dosage: UNK (RCHOP CHEMO - DOSE AND EXACT ROUTE NOT KNOWN.) CONCENTRATE FOR SOLUTION FOR INFUSION
     Route: 065
     Dates: end: 20220512
  4. RITUXIMAB [Suspect]
     Active Substance: RITUXIMAB
     Dosage: UNK, RCHOP CHEMO - DOSE AND EXACT ROUTE NOT KNOWN, CONCENTRATE FOR SOLUTION FOR INFUSION
     Route: 065
     Dates: end: 20220512
  5. RITUXIMAB [Suspect]
     Active Substance: RITUXIMAB
     Dosage: UNK, (RCHOP CHEMO - DOSE AND EX), CONCENTRATE FOR SOLUTION FOR INFUSION
     Route: 042
     Dates: end: 20220512
  6. RITUXIMAB [Suspect]
     Active Substance: RITUXIMAB
     Dosage: UNK,RCHOP CHEMO - DOSE AND EXACT ROUTE NOT KNOWN. UNK, CYCLIC (6 CYCLE, RCHOP CHEMO - DOSE), CONCENT
     Route: 065
     Dates: end: 20220512
  7. RITUXIMAB [Suspect]
     Active Substance: RITUXIMAB
     Dosage: UNK, CYCLIC, CONCENTRATE FOR SOLUTION FOR INFUSION
     Route: 042
     Dates: end: 20220512
  8. RITUXIMAB [Suspect]
     Active Substance: RITUXIMAB
     Dosage: UNK, RCHOP CHEMO - DOSE AND EXACT ROUTE NOT KNOWN.; ;ADDITIONAL INFO: RCHOP CHEMO - DOSE AND EXACT R
     Route: 065
     Dates: end: 20220512
  9. RITUXIMAB [Suspect]
     Active Substance: RITUXIMAB
     Dosage: UNK, CONCENTRATE FOR SOLUTION FOR INFUSION
     Route: 065
     Dates: end: 20220512
  10. RITUXIMAB [Suspect]
     Active Substance: RITUXIMAB
     Dosage: UNK,CYCLIC (6 CYCLE, RCHOP CHEMO - DOSE); ; ADDITIONAL INFO: RCHOP CHEMO - DOSE AND EXACT ROUTE NOT,
     Route: 065
     Dates: end: 20220512
  11. RITUXIMAB [Suspect]
     Active Substance: RITUXIMAB
     Dosage: UNK, RCHOP CHEMO - DOSE AND EXACT ROUTE NOT KNOWN, CONCENTRATE FOR SOLUTION FOR INFUSION
     Route: 065
     Dates: end: 20220512
  12. RITUXIMAB [Suspect]
     Active Substance: RITUXIMAB
     Dosage: UNK, RCHOP CHEMO - DOSE AND EXACT ROUTE NOT KNOWN. UNK, CYCLIC (6 CYCLE, RCHOP CHEMO - DOSE), SOLUTI
     Route: 065
     Dates: end: 20220512
  13. RITUXIMAB [Suspect]
     Active Substance: RITUXIMAB
     Dosage: UNK, CYCLIC (6 CYCLE, RCHOP CHEMO, CONCENTRATE FOR SOLUTION FOR INFUSION
     Route: 042
     Dates: end: 20220512
  14. RITUXIMAB [Suspect]
     Active Substance: RITUXIMAB
     Dosage: UNK, CYCLIC (6 CYCLE, RCHOP CHEMO) SOLUTION FOR INFUSION
     Route: 065
     Dates: end: 20220512
  15. RITUXIMAB [Suspect]
     Active Substance: RITUXIMAB
     Dosage: UNK, RCHOP CHEMO, SOLUTION FOR INFUSION
     Route: 065
     Dates: end: 20220512
  16. RITUXIMAB [Suspect]
     Active Substance: RITUXIMAB
     Dosage: UNK, RCHOP CHEMO, CONCENTRATE FOR SOLUTION FOR INFUSION
     Route: 065
     Dates: end: 20220512
  17. RITUXIMAB [Suspect]
     Active Substance: RITUXIMAB
     Dosage: UNK, CYCLIC, SOLUTION FOR INFUSION
     Route: 042
     Dates: end: 20220512
  18. RITUXIMAB [Suspect]
     Active Substance: RITUXIMAB
     Dosage: UNK, SOLUTION FOR INFUSION
     Route: 065
     Dates: end: 20220512
  19. RITUXIMAB [Suspect]
     Active Substance: RITUXIMAB
     Dosage: UNK, MOST RECENT DOSE ON 12/MAY/2022 , CONCENTRATE FOR SOLUTION FOR INFUSION
     Route: 065
     Dates: end: 20220512
  20. RITUXIMAB [Suspect]
     Active Substance: RITUXIMAB
     Dosage: UNK (RCHOP CHEMO - DOSE AND EX), SOLUTION FOR INFUSION
     Route: 042
     Dates: end: 20220512
  21. RITUXIMAB [Suspect]
     Active Substance: RITUXIMAB
     Dosage: UNK, RCHOP CHEMO - DOSE AND EXACT ROUTE NOT KNOWN, SOLUTION FOR INFUSION
     Route: 042
     Dates: end: 20220512
  22. RITUXIMAB [Suspect]
     Active Substance: RITUXIMAB
     Dosage: UNK, RCHOP CHEMO - DOSE AND EXACT ROUTE NOT KNOWN.; UNK UNK, CYCLIC (6 CYCLE, RCHOP CHEMO - DOSE)
     Route: 065
     Dates: end: 20220512
  23. RITUXIMAB [Suspect]
     Active Substance: RITUXIMAB
     Dosage: UNK, (RCHOP CHEMO, SOLUTION FOR INFUSION
     Route: 065
     Dates: end: 20220512
  24. RITUXIMAB [Suspect]
     Active Substance: RITUXIMAB
     Dosage: UNK, (RCHOP CHEMO); ; ADDITIONAL INFO: RCHOP CHEMO - DOSE AND EXACT ROUTE NOT KNOWN, SOLUTION FOR IN
     Route: 065
     Dates: end: 20220512
  25. RITUXIMAB [Suspect]
     Active Substance: RITUXIMAB
     Dosage: UNK, (RCHOP CHEMO, SOLUTION FOR INFUSION
     Route: 065
     Dates: end: 20220512
  26. RITUXIMAB [Suspect]
     Active Substance: RITUXIMAB
     Dosage: UNK, RCHOP CHEMO - DOSE AND EXACT ROUTE NOT KNOWN.UNK, CYCLIC (6 CYCLE, RCHOP CHEMO - DOSE), CONCENT
     Route: 042
     Dates: end: 20220512
  27. RITUXIMAB [Suspect]
     Active Substance: RITUXIMAB
     Dosage: UNK, (RCHOP CHEMO), CYCLIC (6 CYCLE) SOLUTION FOR INFUSION
     Route: 042
     Dates: end: 20220512
  28. RITUXIMAB [Suspect]
     Active Substance: RITUXIMAB
     Dosage: UNK, CONCENTRATE FOR SOLUTION FOR INFUSION
     Route: 065
  29. RITUXIMAB [Suspect]
     Active Substance: RITUXIMAB
     Dosage: UNK,CYCLIC (RCHOP CHEMO - DOSE AND EXACT ROUTE NOT KNOWN.UNK, CYCLIC (6 CYCLE, RCHOP CHEMO - DOSE);
     Route: 042
     Dates: end: 20220512
  30. RITUXIMAB [Suspect]
     Active Substance: RITUXIMAB
     Dosage: UNK, CYCLIC (6 CYCLE, RCHOP CHEMO - DOSE): INTRAVENOUS DRIP, RCHOP CHEMO - DOSE AND EXACT ROUTE NOT,
     Route: 065
     Dates: end: 20220512
  31. RITUXIMAB [Suspect]
     Active Substance: RITUXIMAB
     Dosage: UNK, CYCLIC (6 CYCLE, RCHOP CHEMO, SOLUTION FOR INFUSION
     Route: 042
     Dates: end: 20220512
  32. RITUXIMAB [Suspect]
     Active Substance: RITUXIMAB
     Dosage: UNK, MOST RECENT DOSE ON 12/MAY/2022; ; ADDITIONAL INFO: RCHOP CHEMO - DOSE AND EXACT ROUTE NOT KNOW
     Route: 065
     Dates: end: 20220512
  33. RITUXIMAB [Suspect]
     Active Substance: RITUXIMAB
     Dosage: UNK, CYCLIC (6 CYCLE, RCHOP CHEMO - DOSE); INTRAVENOUS DRIP, CONCENTRATE FOR SOLUTION FOR INFUSION
     Route: 065
     Dates: end: 20220512
  34. RITUXIMAB [Suspect]
     Active Substance: RITUXIMAB
     Dosage: UNK,CYCLIC (6 CYCLE, RCHOP CHEMO - DOSE), SOLUTION FOR INFUSION
     Route: 042
     Dates: end: 20220512
  35. RITUXIMAB [Suspect]
     Active Substance: RITUXIMAB
     Dosage: UNK, RCHOP CHEMO, CONCENTRATE FOR SOLUTION FOR INFUSION
     Route: 065
     Dates: end: 20220512
  36. RITUXIMAB [Suspect]
     Active Substance: RITUXIMAB
     Dosage: UNK, RCHOP CHEMO, CONCENTRATE FOR SOLUTION FOR INFUSION
     Route: 065
     Dates: end: 20220512
  37. RITUXIMAB [Suspect]
     Active Substance: RITUXIMAB
     Dosage: UNK (MOST RECENT DOSE ON 12/MAY/2022), SOLUTION FOR INFUSION
     Route: 065
     Dates: end: 20220512
  38. RITUXIMAB [Suspect]
     Active Substance: RITUXIMAB
     Dosage: UNK, CYCLIC (6 CYCLE, RCHOP CHEMO - DOSE), SOLUTION FOR INFUSION
     Route: 065
     Dates: end: 20220512
  39. RITUXIMAB [Suspect]
     Active Substance: RITUXIMAB
     Dosage: UNK, CYCLIC (6 CYCLE, RCHOP CHEMO - DOSE), CONCENTRATE FOR SOLUTION FOR INFUSION
     Route: 065
     Dates: end: 20220512
  40. RITUXIMAB [Suspect]
     Active Substance: RITUXIMAB
     Dosage: UNK, RCHOP CHEMO - DOSE AND EXACT ROUTE NOT KNOWN.UNK, CYCLIC (6 CYCLE, RCHOP CHEMO - DOSE), SOLUTIO
     Route: 042
     Dates: end: 20220512
  41. RITUXIMAB [Suspect]
     Active Substance: RITUXIMAB
     Dosage: UNK, CYCLIC (6 CYCLE, RCHOP CHEMO - DOSE) , CONCENTRATE FOR SOLUTION FOR INFUSION
     Route: 042
     Dates: end: 20220512
  42. RITUXIMAB [Suspect]
     Active Substance: RITUXIMAB
     Dosage: UNK, (RCHOP CHEMO, SOLUTION FOR INFUSION
     Route: 065
     Dates: end: 20220512
  43. RITUXIMAB [Suspect]
     Active Substance: RITUXIMAB
     Dosage: UNK, MOST RECENT DOSE ON 12-MAY-2022; SOLUTION FOR INFUSION
     Route: 065
     Dates: end: 20220512
  44. RITUXIMAB [Suspect]
     Active Substance: RITUXIMAB
     Dosage: UNK, RCHOP CHEMO, CONCENTRATE FOR SOLUTION FOR INFUSION
     Route: 042
     Dates: end: 20220512
  45. RITUXIMAB [Suspect]
     Active Substance: RITUXIMAB
     Dosage: UNK, SOLUTION FOR INFUSION
     Route: 065
     Dates: end: 20220512
  46. RITUXIMAB [Suspect]
     Active Substance: RITUXIMAB
     Dosage: UNK, CYCLIC (MOST RECENT DOSE ON (6 CYCLE, RCHOP CHEMO - DOSE), SOLUTION FOR INFUSION
     Route: 042
     Dates: end: 20220512
  47. RITUXIMAB [Suspect]
     Active Substance: RITUXIMAB
     Dosage: UNK, CYCLIC, CONCENTRATE FOR SOLUTION FOR INFUSION
     Route: 042
     Dates: end: 20220512
  48. RITUXIMAB [Suspect]
     Active Substance: RITUXIMAB
     Dosage: UNK, CYCLIC (6 CYCLE, RCHOP CHEMO - DOSE); INTRAVENOUS DRIP, SOLUTION FOR INFUSION
     Route: 065
     Dates: end: 20220512
  49. RITUXIMAB [Suspect]
     Active Substance: RITUXIMAB
     Dosage: UNK, CYCLIC (6 CYCLE, RCHOP CHEMO - DOSE): INTRAVENOUS DRIP, RCHOP CHEMO - DOSE AND EXACT ROUTE NOT,
     Route: 065
     Dates: end: 20220512
  50. RITUXIMAB [Suspect]
     Active Substance: RITUXIMAB
     Dosage: UNK, RCHOP CHEMO - DOSE AND EXACT ROUTE NOT KNOWN, CONCENTRATE FOR SOLUTION FOR INFUSION
     Route: 042
     Dates: end: 20220512
  51. RITUXIMAB [Suspect]
     Active Substance: RITUXIMAB
     Dosage: CYCLIC (MOST RECENT DOSE ON (6 CYCLE, RCHOP CHEMO - DOSE)
     Route: 042
     Dates: end: 20220512
  52. RITUXIMAB [Suspect]
     Active Substance: RITUXIMAB
     Dosage: UNK (RCHOP CHEMO - DOSE AND EXACT ROUTE NOT KNOWN.)
     Route: 042
     Dates: end: 20220512
  53. RITUXIMAB [Suspect]
     Active Substance: RITUXIMAB
     Dosage: UNK, CYCLIC (6 CYCLE, RCHOP CHEMO - DOSE)
     Route: 042
     Dates: end: 20220512
  54. RITUXIMAB [Suspect]
     Active Substance: RITUXIMAB
     Dosage: RCHOP CHEMO - DOSE AND EXACT ROUTE NOT KNOWN. UNK, CYCLIC (6 CYCLE, RCHOP CHEMO - DOSE), MOST RECENT
     Route: 042
     Dates: end: 20220512
  55. RITUXIMAB [Suspect]
     Active Substance: RITUXIMAB
     Dosage: RCHOP CHEMO - DOSE AND EXACT ROUTE NOT KNOWN.; ;ADDITIONAL INFO: RCHOP CHEMO - DOSE AND EXACT ROUTE
     Route: 042
     Dates: end: 20220512
  56. RITUXIMAB [Suspect]
     Active Substance: RITUXIMAB
     Dosage: RCHOP CHEMO - DOSE AND EXACT ROUTE NOT KNOWN
     Route: 042
     Dates: end: 20220512
  57. RITUXIMAB [Suspect]
     Active Substance: RITUXIMAB
     Dosage: RCHOP CHEMO - DOSE AND EXACT ROUTE NOT KNOWN
     Route: 042
     Dates: end: 20220512
  58. RITUXIMAB [Suspect]
     Active Substance: RITUXIMAB
     Dosage: UNK
     Route: 042
     Dates: end: 20220512
  59. RITUXIMAB [Suspect]
     Active Substance: RITUXIMAB
     Dosage: RCHOP CHEMO - DOSE AND EXACT ROUTE NOT KNOWN. UNK, CYCLIC (6 CYCLE, RCHOP CHEMO - DOSE)
     Route: 042
     Dates: end: 20220512
  60. RITUXIMAB [Suspect]
     Active Substance: RITUXIMAB
     Dosage: CYCLIC (RCHOP CHEMO - DOSE AND EXACT ROUTE NOT KNOWN.UNK, CYCLIC (6 CYCLE, RCHOP CHEMO - DOSE); ; AD
     Route: 042
     Dates: end: 20220512
  61. RITUXIMAB [Suspect]
     Active Substance: RITUXIMAB
     Dosage: DOSE:1, CYCLE /RCHOP CHEMO - DOSE AND EXACT ROUTE NOT KNOWN. UNK, CYCLIC (6 CYCLE, RCHOP CHEMO - DOS
     Route: 042
     Dates: end: 20220512
  62. RITUXIMAB [Suspect]
     Active Substance: RITUXIMAB
     Dosage: CYCLIC (6 CYCLE, RCHOP CHEMO - DOSE); INTRAVENOUS DRIP
     Route: 042
     Dates: end: 20220512
  63. RITUXIMAB [Suspect]
     Active Substance: RITUXIMAB
     Dosage: MOST RECENT DOSE ON 12/MAY/2022; ; ADDITIONAL INFO: RCHOP CHEMO - DOSE AND EXACT ROUTE NOT KNOWN.
     Route: 042
     Dates: end: 20220512
  64. RITUXIMAB [Suspect]
     Active Substance: RITUXIMAB
     Dosage: DOSE:1, CYCLE /RCHOP CHEMO - DOSE AND EXACT ROUTE NOT KNOWN. UNK, CYCLIC (6 CYCLE, RCHOP CHEMO - DOS
     Route: 042
     Dates: end: 20220512
  65. RITUXIMAB [Suspect]
     Active Substance: RITUXIMAB
     Dosage: UNK ,UNK; ; ADDITIONAL INFO: RCHOP CHEMO - DOSE AND EXACT ROUTE NOT KNOWN
     Route: 042
     Dates: end: 20220512
  66. RITUXIMAB [Suspect]
     Active Substance: RITUXIMAB
     Dosage: UNK ,UNK; ; ADDITIONAL INFO: RCHOP CHEMO - DOSE AND EXACT ROUTE NOT KNOWN
     Route: 042
     Dates: end: 20220512
  67. RITUXIMAB [Suspect]
     Active Substance: RITUXIMAB
     Dosage: CONCENTRATE FOR SOLUTION FOR INFUSION
     Route: 042
     Dates: end: 20220512
  68. RITUXIMAB [Suspect]
     Active Substance: RITUXIMAB
     Dosage: RCHOP CHEMO - DOSE AND EXACT ROUTE NOT KNOWN.
     Route: 042
     Dates: end: 20220512
  69. RITUXIMAB [Suspect]
     Active Substance: RITUXIMAB
     Dosage: CONCENTRATE FOR SOLUTION FOR INFUSION
     Route: 042
     Dates: end: 20220512
  70. PREDNISOLONE [Suspect]
     Active Substance: PREDNISOLONE
     Indication: B-cell lymphoma
     Dosage: UNK, RCHOP CHEMO - DOSE AND EXACT ROUTE NOT KNOWN CYCLIC (6 CYCLE, RCHOP CHEMO - DOSE, GASTRO RESIST
     Route: 065
     Dates: end: 20220512
  71. PREDNISOLONE [Suspect]
     Active Substance: PREDNISOLONE
     Dosage: UNK, CYCLIC
     Route: 065
     Dates: end: 20220512
  72. PREDNISOLONE [Suspect]
     Active Substance: PREDNISOLONE
     Dosage: UNK UNK, CYCLIC (6 CYCLE, RCHOP CHEMO - DOSE)
     Route: 065
     Dates: end: 20220512
  73. PREDNISOLONE [Suspect]
     Active Substance: PREDNISOLONE
     Dosage: UNK, RCHOP CHEMO - DOSE AND EXACT ROUTE NOT KNOWN CYCLIC (6 CYCLE, RCHOP CHEMO - DOSE, GASTRO RESIST
     Route: 042
     Dates: end: 20220512
  74. PREDNISOLONE [Suspect]
     Active Substance: PREDNISOLONE
     Dosage: UNK UNK, CYCLIC (6 CYCLE, RCHOP CHEMO - DOSE, GASTRO RESISTANT)
     Route: 065
     Dates: end: 20220512
  75. PREDNISOLONE [Suspect]
     Active Substance: PREDNISOLONE
     Dosage: UNK UNK, CYCLIC (6 CYCLE, RCHOP CHEMO - DOSE, GASTRO RESISTANT)
     Route: 065
     Dates: end: 20220512
  76. PREDNISOLONE [Suspect]
     Active Substance: PREDNISOLONE
     Dosage: UNK, RCHOP CHEMO - DOSE AND EXACT ROUTE NOT KNOWN CYCLIC (6 CYCLE, RCHOP CHEMO - DOSE, GASTRO RESIST
     Route: 065
     Dates: end: 20220512
  77. PREDNISOLONE [Suspect]
     Active Substance: PREDNISOLONE
     Dosage: UNK, (RCHOP CHEMO - DOSE AND EXACT ROUTE NOT KNOWN, CYCLIC (6 CYCLE, RCHOP CHEMO - DOSE, GASTRO RESI
     Route: 065
     Dates: end: 20220512
  78. PREDNISOLONE [Suspect]
     Active Substance: PREDNISOLONE
     Dosage: UNK, DOSE:1, CYCLE/ RCHOP CHEMO - DOSE AND EXACT ROUTE NOT KNOWN CYCLIC (6 CYCLE, RCHOP CHEMO - DOSE
     Route: 065
     Dates: end: 20220512
  79. PREDNISOLONE [Suspect]
     Active Substance: PREDNISOLONE
     Dosage: UNK, RCHOP CHEMO - DOSE AND EXACT ROUTE NOT KNOWN CYCLIC (6 CYCLE, RCHOP CHEMO - DOSE, GASTRO RESIST
     Route: 065
     Dates: end: 20220512
  80. PREDNISOLONE [Suspect]
     Active Substance: PREDNISOLONE
     Dosage: UNK, RCHOP CHEMO - DOSE AND EXACT ROUTE NOT KNOWN
     Route: 065
     Dates: end: 20220512
  81. PREDNISOLONE [Suspect]
     Active Substance: PREDNISOLONE
     Dosage: UNK UNK, CYCLIC (6 CYCLE, RCHOP CHEMO - DOSE, GASTRO RESISTANT) - MOST RECENT DOSE ON 12-MAY-2022
     Route: 042
     Dates: end: 20220512
  82. PREDNISOLONE [Suspect]
     Active Substance: PREDNISOLONE
     Dosage: UNK UNK, CYCLIC (6 CYCLE, RCHOP CHEMO - DOSE, GASTRO RESISTANT)
     Route: 065
     Dates: end: 20220512
  83. PREDNISOLONE [Suspect]
     Active Substance: PREDNISOLONE
     Dosage: UNK UNK, CYCLIC (6 CYCLE, RCHOP CHEMO - DOSE, GASTRO RESISTANT)
     Route: 065
     Dates: end: 20220512
  84. PREDNISOLONE [Suspect]
     Active Substance: PREDNISOLONE
     Dosage: UNK UNK, CYCLIC (6 CYCLE, RCHOP CHEMO - DOSE, GASTRO RESISTANT)
     Route: 065
     Dates: end: 20220512
  85. PREDNISOLONE [Suspect]
     Active Substance: PREDNISOLONE
     Dosage: UNK, RCHOP CHEMO - DOSE AND EXACT ROUTE NOT KNOWN CYCLIC (6 CYCLE, RCHOP CHEMO - DOSE, GASTRO RESIST
     Route: 042
     Dates: end: 20220512
  86. PREDNISOLONE [Suspect]
     Active Substance: PREDNISOLONE
     Dosage: UNK, RCHOP CHEMO - DOSE AND EXACT ROUTE NOT KNOWN CYCLIC (6 CYCLE, RCHOP CHEMO - DOSE, GASTRO RESIST
     Route: 065
     Dates: end: 20220512
  87. PREDNISOLONE [Suspect]
     Active Substance: PREDNISOLONE
     Dosage: UNK UNK, CYCLIC (6 CYCLE, RCHOP CHEMO - DOSE, GASTRO RESISTANT)
     Route: 042
     Dates: end: 20220512
  88. PREDNISOLONE [Suspect]
     Active Substance: PREDNISOLONE
     Dosage: UNK, UNK, RCHOP CHEMO - DOSE AND EXACT ROUTE NOT KNOWN CYCLIC (6 CYCLE, RCHOP CHEMO - DOSE, GASTRO R
     Route: 042
     Dates: end: 20220512
  89. PREDNISOLONE [Suspect]
     Active Substance: PREDNISOLONE
     Dosage: UNK, UNK, CYCLIC
     Route: 042
     Dates: end: 20220512
  90. PREDNISOLONE [Suspect]
     Active Substance: PREDNISOLONE
     Dosage: UNK, (RCHOP CHEMO - DOSE AND EXACT R)
     Route: 065
     Dates: end: 20220512
  91. CYCLOPHOSPHAMIDE [Suspect]
     Active Substance: CYCLOPHOSPHAMIDE
     Indication: B-cell lymphoma
     Dosage: UNK, CYCLIC (6 CYCLE, RCHOP CHEMO - DOSE, SOLUTION FOR INFUSION
     Route: 065
     Dates: end: 20220512
  92. CYCLOPHOSPHAMIDE [Suspect]
     Active Substance: CYCLOPHOSPHAMIDE
     Dosage: UNK, CYCLIC (6 CYCLE, RCHOP CHEMO - DOSE, SOLUTION FOR INFUSION
     Route: 065
     Dates: end: 20220512
  93. CYCLOPHOSPHAMIDE [Suspect]
     Active Substance: CYCLOPHOSPHAMIDE
     Dosage: UNK, RCHOP CHEMO, SOLUTION FOR INFUSION
     Route: 065
     Dates: end: 20220512
  94. CYCLOPHOSPHAMIDE [Suspect]
     Active Substance: CYCLOPHOSPHAMIDE
     Dosage: UNK, RCHOP CHEMO - DOSE AND EXACT ROUTE NOT KNOWN, CYCLIC (6 CYCLE, RCHOP CHEMO - DOSE), SOLUTION FO
     Route: 065
     Dates: end: 20220512
  95. CYCLOPHOSPHAMIDE [Suspect]
     Active Substance: CYCLOPHOSPHAMIDE
     Dosage: UNK, RCHOP CHEMO - DOSE AND EXACT ROUTE NOT KNOWN.; UNK UNK, CYCLIC (RCHOP CHEMO), SOLUTION FOR INFU
     Route: 065
     Dates: end: 20220512
  96. CYCLOPHOSPHAMIDE [Suspect]
     Active Substance: CYCLOPHOSPHAMIDE
     Dosage: UNK, (RCHOP CHEMO - DOSE AND EXACT ROUTE NOT KNOWN, SOLUTION FOR INFUSION)
     Route: 065
     Dates: end: 20220512
  97. CYCLOPHOSPHAMIDE [Suspect]
     Active Substance: CYCLOPHOSPHAMIDE
     Dosage: UNK, RCHOP CHEMO - DOSE AND EXACT ROUTE NOT KNOWN CYCLIC (6 CYCLE, RCHOP CHEMO - DOSE), SOLUTION FOR
     Route: 065
     Dates: end: 20220512
  98. CYCLOPHOSPHAMIDE [Suspect]
     Active Substance: CYCLOPHOSPHAMIDE
     Dosage: UNK, RCHOP CHEMO - DOSE AND EXACT ROUTE NOT KNOWN.; UNK UNK, CYCLIC (RCHOP CHEMO), SOLUTION FOR INFU
     Route: 065
     Dates: end: 20220512
  99. CYCLOPHOSPHAMIDE [Suspect]
     Active Substance: CYCLOPHOSPHAMIDE
     Dosage: UNK, RCHOP CHEMO - DOSE AND EXACT ROUTE NOT KNOWN.; UNK UNK, CYCLIC (RCHOP CHEMO), SOLUTION FOR INFU
     Route: 065
     Dates: end: 20220512
  100. CYCLOPHOSPHAMIDE [Suspect]
     Active Substance: CYCLOPHOSPHAMIDE
     Dosage: UNK, RCHOP CHEMO, SOLUTION FOR INFUSION
     Route: 065
     Dates: end: 20220512
  101. CYCLOPHOSPHAMIDE [Suspect]
     Active Substance: CYCLOPHOSPHAMIDE
     Dosage: UNK, RCHOP CHEMO - DOSE AND EXACT ROUTE NOT KNOWN, CYCLIC (6 CYCLE, RCHOP CHEMO - DOSE), SOLUTION FO
     Route: 065
     Dates: end: 20220512
  102. CYCLOPHOSPHAMIDE [Suspect]
     Active Substance: CYCLOPHOSPHAMIDE
     Dosage: UNK, RCHOP CHEMO - DOSE AND EXACT ROUTE NOT KNOWN.; UNK UNK, CYCLIC (6 CYCLE, RCHOP CHEMO - DOSE, SO
     Route: 065
     Dates: end: 20220512
  103. CYCLOPHOSPHAMIDE [Suspect]
     Active Substance: CYCLOPHOSPHAMIDE
     Dosage: UNK, CYCLIC (6 CYCLE, RCHOP CHEMO - DOSE, SOLUTION FOR INFUSION
     Route: 065
     Dates: end: 20220512
  104. CYCLOPHOSPHAMIDE [Suspect]
     Active Substance: CYCLOPHOSPHAMIDE
     Dosage: UNK, CYCLIC (6 CYCLE, RCHOP CHEMO - DOSE); RCHOP CHEMO - DOSE AND EXACT ROUTE NOT KNOWN, CYCLIC, SOL
     Route: 065
     Dates: end: 20220512
  105. CYCLOPHOSPHAMIDE [Suspect]
     Active Substance: CYCLOPHOSPHAMIDE
     Dosage: UNK, RCHOP CHEMO - DOSE AND EXACT ROUTE NOT KNOWN.; UNK UNK, CYCLIC (RCHOP CHEMO), SOLUTION FOR INFU
     Route: 065
  106. CYCLOPHOSPHAMIDE [Suspect]
     Active Substance: CYCLOPHOSPHAMIDE
     Dosage: UNK, RCHOP CHEMO - DOSE AND EXACT ROUTE NOT KNOWN.; UNK UNK, CYCLIC (RCHOP CHEMO), SOLUTION FOR INFU
     Route: 065
     Dates: end: 20220512
  107. CYCLOPHOSPHAMIDE [Suspect]
     Active Substance: CYCLOPHOSPHAMIDE
     Dosage: UNK, CYCLIC (RCHOP CHEMO, MOST RECENT DOSE ON 12 MAY 2022), SOLUTION FOR INFUSION
     Route: 065
     Dates: end: 20220512
  108. CYCLOPHOSPHAMIDE [Suspect]
     Active Substance: CYCLOPHOSPHAMIDE
     Dosage: UNK, RCHOP CHEMO - DOSE AND EXACT ROUTE NOT KNOWN.; UNK UNK, CYCLIC (6 CYCLE, RCHOP CHEMO - DOSE, SO
     Route: 065
     Dates: end: 20220512
  109. CYCLOPHOSPHAMIDE [Suspect]
     Active Substance: CYCLOPHOSPHAMIDE
     Dosage: UNK, CYCLIC (6 CYCLE, RCHOP CHEMO - DOSE), RCHOP CHEMO - DOSE AND EXACT ROUTE NOT KNOWN. RCHOP CHEMO
     Route: 065
     Dates: end: 20220512
  110. CYCLOPHOSPHAMIDE [Suspect]
     Active Substance: CYCLOPHOSPHAMIDE
     Dosage: UNK, DOSE 1, CYCLE/RCHOP CHEMO - DOSE AND EXACT ROUTE NOT KNOWN CYCLIC (6 CYCLE, RCHOP CHEMO - DOSE)
     Route: 065
     Dates: end: 20220512
  111. CYCLOPHOSPHAMIDE [Suspect]
     Active Substance: CYCLOPHOSPHAMIDE
     Dosage: UNK, CYCLIC, RCHOP CHEMO - DOSE AND EXACT ROUTE NOT KNOWN.; UNK UNK, CYCLIC (RCHOP CHEMO), SOLUTION
     Route: 065
     Dates: end: 20220512
  112. CYCLOPHOSPHAMIDE [Suspect]
     Active Substance: CYCLOPHOSPHAMIDE
     Dosage: UNK, CYCLIC (6 CYCLE, RCHOP CHEMO - DOSE, SOLUTION FOR INFUSION
     Route: 065
     Dates: end: 20220512
  113. CYCLOPHOSPHAMIDE [Suspect]
     Active Substance: CYCLOPHOSPHAMIDE
     Dosage: UNK, CYCLIC (6 CYCLE, RCHOP CHEMO - DOSE), SOLUTION FOR INFUSION
     Route: 065
     Dates: end: 20220512
  114. CYCLOPHOSPHAMIDE [Suspect]
     Active Substance: CYCLOPHOSPHAMIDE
     Dosage: UNK, RCHOP CHEMO, MOST RECENT DOSE ON 12-MAY-2022, SOLUTION FOR INFUSION
     Route: 065
  115. CYCLOPHOSPHAMIDE [Suspect]
     Active Substance: CYCLOPHOSPHAMIDE
     Dosage: UNK, RCHOP CHEMO - DOSE AND EXACT ROUTE NOT KNOWN CYCLIC (6 CYCLE, RCHOP CHEMO - DOSE, SOLUTION FOR
     Route: 065
     Dates: end: 20220512
  116. CYCLOPHOSPHAMIDE [Suspect]
     Active Substance: CYCLOPHOSPHAMIDE
     Dosage: UNK, RCHOP CHEMO - DOSE AND EXACT ROUTE NOT KNOWN, CYCLIC (6 CYCLE, RCHOP CHEMO - DOSE), RCHOP CHEMO
     Route: 065
     Dates: end: 20220512
  117. CYCLOPHOSPHAMIDE [Suspect]
     Active Substance: CYCLOPHOSPHAMIDE
     Dosage: UNK, RCHOP CHEMO - DOSE AND EXACT ROUTE NOT KNOWN.; UNK UNK, CYCLIC (RCHOP CHEMO), SOLUTION FOR INFU
     Route: 065
     Dates: end: 20220512
  118. CYCLOPHOSPHAMIDE [Suspect]
     Active Substance: CYCLOPHOSPHAMIDE
     Dosage: UNK, RCHOP CHEMO - DOSE AND EXACT ROUTE NOT KNOWN, CYCLIC (6 CYCLE, RCHOP CHEMO - DOSE), SOLUTION FO
     Route: 065
     Dates: end: 20220512
  119. CYCLOPHOSPHAMIDE [Suspect]
     Active Substance: CYCLOPHOSPHAMIDE
     Dosage: UNK, RCHOP CHEMO - DOSE AND EXACT ROUTE NOT KNOWN.; UNK UNK, CYCLIC (6 CYCLE, RCHOP CHEMO - DOSE, SO
     Route: 065
     Dates: end: 20220512
  120. VINCRISTINE [Suspect]
     Active Substance: VINCRISTINE
     Indication: B-cell lymphoma
     Dosage: UNK, CYCLIC (6 CYCLE RCHOP CHEMO DOSE, GASTRO RESISTANT)
     Route: 065
     Dates: end: 20220512
  121. VINCRISTINE [Suspect]
     Active Substance: VINCRISTINE
     Dosage: UNK, CYCLIC (6 CYCLE RCHOP CHEMO DOSE, GASTRO RESISTANT), (RCHOP CHEMO - DOSE AND EXACT ROUTE NOT KN
     Route: 065
     Dates: end: 20220512
  122. VINCRISTINE [Suspect]
     Active Substance: VINCRISTINE
     Dosage: UNK, DOSE:1, CYCLE/ RCHOP CHEMO - DOSE AND EXACT ROUTE NOT KNOWN CYCLIC (6 CYCLE, RCHOP CHEMO - DOSE
     Route: 065
     Dates: end: 20220512
  123. VINCRISTINE [Suspect]
     Active Substance: VINCRISTINE
     Dosage: UNK, RCHOP CHEMO (INJECTION)
     Route: 065
     Dates: end: 20220512
  124. VINCRISTINE [Suspect]
     Active Substance: VINCRISTINE
     Dosage: UNK, CYCLIC (6 CYCLE, RCHOP CHEMO - DOSE, GASTRO RESISTANT) RCHOP CHEMO - DOSE AND EXACT ROUTE NOT K
     Route: 065
     Dates: end: 20220512
  125. VINCRISTINE [Suspect]
     Active Substance: VINCRISTINE
     Dosage: UNK, RCHOP CHEMO - DOSE AND EXACT ROUTE NOT KNOWN.CYCLIC (6 CYCLE, RCHOP CHEMO - DOSE, GASTRO RESIST
     Route: 065
     Dates: end: 20220512
  126. VINCRISTINE [Suspect]
     Active Substance: VINCRISTINE
     Dosage: UNK (RCHOP CHEMO - DOSE AND EXACT ROUTE NOT KNOWN. CYCLIC (6 CYCLE, RCHOP CHEMO - DOSE, GASTRO RESIS
     Route: 065
     Dates: end: 20220512
  127. VINCRISTINE [Suspect]
     Active Substance: VINCRISTINE
     Dosage: UNK, CYCLIC (6 CYCLE RCHOP CHEMO DOSE, GASTRO RESISTANT), INJECTION
     Route: 065
     Dates: end: 20220512
  128. VINCRISTINE [Suspect]
     Active Substance: VINCRISTINE
     Dosage: UNK, RCHOP CHEMO
     Route: 065
     Dates: end: 20220512
  129. VINCRISTINE [Suspect]
     Active Substance: VINCRISTINE
     Dosage: UNK (RCHOP CHEMO - DOSE AND EXACT ROUTE NOT KNOWN)
     Route: 065
     Dates: end: 20220512
  130. VINCRISTINE [Suspect]
     Active Substance: VINCRISTINE
     Dosage: UNK (RCHOP CHEMO - DOSE AND EXACT ROUTE NOT KNOWN. CYCLIC (6 CYCLE, RCHOP CHEMO - DOSE, GASTRO RE
     Route: 065
     Dates: end: 20220512
  131. VINCRISTINE [Suspect]
     Active Substance: VINCRISTINE
     Dosage: UNK (RCHOP CHEMO - DOSE AND EXACT ROUTE NOT KNOWN)
     Route: 065
     Dates: end: 20220512
  132. VINCRISTINE [Suspect]
     Active Substance: VINCRISTINE
     Dosage: UNK, CYCLIC (6 CYCLE RCHOP CHEMO DOSE, GASTRO RESISTANT), MOST RECENT DOSE ON 12-MAY-2022; ; ADDI
     Route: 065
     Dates: end: 20220512
  133. VINCRISTINE [Suspect]
     Active Substance: VINCRISTINE
     Dosage: UNK, CYCLIC (6 CYCLE RCHOP CHEMO DOSE, GASTRO RESISTANT), INJECTION
     Route: 065
     Dates: end: 20220512
  134. VINCRISTINE [Suspect]
     Active Substance: VINCRISTINE
     Dosage: UNK, RCHOP CHEMO - DOSE AND EXACT ROUTE NOT KNOWN.CYCLIC (6 CYCLE, RCHOP CHEMO - DOSE, GASTRO RESIST
     Route: 065
     Dates: end: 20220512
  135. VINCRISTINE [Suspect]
     Active Substance: VINCRISTINE
     Dosage: UNK, RCHOP CHEMO; ; ADDITIONAL INFO: RCHOP CHEMO - DOSE AND EXACT ROUTE NOT KNOWN.
     Route: 065
     Dates: end: 20220512
  136. VINCRISTINE [Suspect]
     Active Substance: VINCRISTINE
     Dosage: UNK, CYCLIC (6 CYCLE RCHOP CHEMO DOSE, GASTRO RESISTANT), MOST RECENT DOSE ON 12-MAY-2022; ; ADDI
     Route: 065
     Dates: end: 20220512
  137. VINCRISTINE [Suspect]
     Active Substance: VINCRISTINE
     Dosage: UNK UNK, CYCLIC ((6 CYCLE RCHOP CHEMO DOSE)
     Route: 065
     Dates: end: 20220512
  138. VINCRISTINE [Suspect]
     Active Substance: VINCRISTINE
     Dosage: UNK, RCHOP CHEMO, MOST RECENT DOSE ON 12-MAY-2022
     Route: 065
     Dates: end: 20220512
  139. VINCRISTINE [Suspect]
     Active Substance: VINCRISTINE
     Dosage: UNK, CYCLIC (6 CYCLE RCHOP CHEMO DOSE, GASTRO RESISTANT), INJECTION
     Route: 065
     Dates: end: 20220512
  140. VINCRISTINE [Suspect]
     Active Substance: VINCRISTINE
     Dosage: UNK, RCHOP CHEMO, MOST RECENT DOSE ON 12/MAY/2022; ; ADDITIONAL INFO: RCHOP CHEMO - DOSE AND EXACT R
     Route: 065
     Dates: end: 20220512
  141. VINCRISTINE [Suspect]
     Active Substance: VINCRISTINE
     Dosage: UNK, RCHOP CHEMO - DOSE AND EXACT ROUTE NOT KNOWN (INJECTION)
     Route: 065
     Dates: end: 20220512
  142. VINCRISTINE [Suspect]
     Active Substance: VINCRISTINE
     Dosage: UNK RCHOP CHEMO - DOSE AND EXACT ROUTE NOT KNOWN. CYCLIC (6 CYCLE, RCHOP CHEMO - DOSE, GASTRO RESIST
     Route: 065
     Dates: end: 20220512
  143. VINCRISTINE [Suspect]
     Active Substance: VINCRISTINE
     Dosage: UNK, CYCLIC (6 CYCLE RCHOP CHEMO DOSE, GASTRO RESISTANT)
     Route: 065
     Dates: end: 20220512
  144. VINCRISTINE [Suspect]
     Active Substance: VINCRISTINE
     Dosage: UNK, RCHOP CHEMO - DOSE AND EXACT ROUTE NOT KNOWN.; ; ADDITIONAL INFO: RCHOP CHEMO - DOSE AND EXACT
     Route: 065
     Dates: end: 20220512
  145. VINCRISTINE [Suspect]
     Active Substance: VINCRISTINE
     Dosage: UNK, CYCLIC (6 CYCLE RCHOP CHEMO DOSE, GASTRO RESISTANT)
     Route: 065
     Dates: end: 20220512
  146. VINCRISTINE [Suspect]
     Active Substance: VINCRISTINE
     Dosage: UNK (RCHOP CHEMO - DOSE AND EXACT ROUTE NOT KNOWN.); ; ADDITIONAL INFO: RCHOP CHEMO - DOSE AND EXACT
     Route: 065
     Dates: end: 20220512
  147. VINCRISTINE [Suspect]
     Active Substance: VINCRISTINE
     Dosage: UNK, (RCHOP CHEMO - DOSE AND EXACT ROUTE NOT KNOWN.)
     Route: 065
     Dates: end: 20220512
  148. VINCRISTINE [Suspect]
     Active Substance: VINCRISTINE
     Dosage: UNK, CYCLIC (1, CYCLICAL, 6 CYCLE, RCHOP CHEMO-DOSE,GASTRO)
     Route: 065
     Dates: end: 20220512
  149. VINCRISTINE [Suspect]
     Active Substance: VINCRISTINE
     Dosage: UNK UNK, CYCLIC (6 CYCLE RCHOP CHEMO DOSE, GASTRO RESISTANT MOST RECENT DOSE ON 12-MAY-2022, INJECTI
     Route: 065
     Dates: end: 20220512
  150. VINCRISTINE [Suspect]
     Active Substance: VINCRISTINE
     Dosage: UNK, CYCLIC (6 CYCLE RCHOP CHEMO DOSE, GASTRO RESISTANT), INJECTION
     Route: 065
     Dates: end: 20220512
  151. VINCRISTINE [Suspect]
     Active Substance: VINCRISTINE
     Dosage: UNK, DOSE:1, CYCLE/ RCHOP CHEMO - DOSE AND EXACT ROUTE NOT KNOWN CYCLIC (6 CYCLE, RCHOP CHEMO - DOSE
     Route: 065
     Dates: end: 20220512
  152. VINCRISTINE [Suspect]
     Active Substance: VINCRISTINE
     Dosage: UNK, DOSE:1, CYCLE/ RCHOP CHEMO - DOSE AND EXACT ROUTE NOT KNOWN CYCLIC (6 CYCLE, RCHOP CHEMO - DOSE
     Route: 065
     Dates: end: 20220512
  153. VINCRISTINE [Suspect]
     Active Substance: VINCRISTINE
     Dosage: UNK, RCHOP CHEMO (INJECTION)
     Route: 065
     Dates: end: 20220512
  154. VINCRISTINE [Suspect]
     Active Substance: VINCRISTINE
     Dosage: UNK UNK, CYCLIC ((6 CYCLE RCHOP CHEMO DOSE)
     Route: 065
     Dates: end: 20220512
  155. VINCRISTINE [Suspect]
     Active Substance: VINCRISTINE
     Dosage: UNK UNK, CYCLIC (6 CYCLE RCHOP CHEMO DOSE, GASTRO RESISTANT MOST RECENT DOSE ON 12-MAY-2022, ADDI
     Route: 065
     Dates: end: 20220512
  156. VINCRISTINE [Suspect]
     Active Substance: VINCRISTINE
     Dosage: UNK, RCHOP CHEMO, MOST RECENT DOSE ON 12-MAY-2022
     Route: 065
     Dates: end: 20220512
  157. VINCRISTINE [Suspect]
     Active Substance: VINCRISTINE
     Dosage: UNK, RCHOP CHEMO; ; ADDITIONAL INFO: RCHOP CHEMO - DOSE AND EXACT ROUTE NOT KNOWN.
     Route: 065
     Dates: end: 20220512
  158. VINCRISTINE [Suspect]
     Active Substance: VINCRISTINE
     Dosage: UNK, RCHOP CHEMO
     Route: 065
     Dates: end: 20220512
  159. VINCRISTINE [Suspect]
     Active Substance: VINCRISTINE
     Dosage: UNK, RCHOP CHEMO - DOSE AND EXACT ROUTE NOT KNOWN. CYCLIC (6 CYCLE, RCHOP CHEMO - DOSE, GASTRO RESIS
     Route: 065
     Dates: end: 20220512
  160. VINCRISTINE [Suspect]
     Active Substance: VINCRISTINE
     Dosage: UNK UNK, CYCLIC (6 CYCLE RCHOP CHEMO DOSE, GASTRO RESISTANT MOST RECENT DOSE ON 12-MAY-2022, ADDI
     Route: 065
     Dates: end: 20220512
  161. VINCRISTINE [Suspect]
     Active Substance: VINCRISTINE
     Dosage: UNK, RCHOP CHEMO; ; ADDITIONAL INFO: RCHOP CHEMO - DOSE AND EXACT ROUTE NOT KNOWN.
     Route: 065
     Dates: end: 20220512
  162. VINCRISTINE [Suspect]
     Active Substance: VINCRISTINE
     Dosage: UNK, CYCLIC (6 CYCLE, RCHOP CHEMO - DOSE, GASTRORESITANT), RCHOP CHEMO - DOSE AND EXACT ROUTE NOT KN
     Route: 065
     Dates: end: 20220512
  163. VINCRISTINE [Suspect]
     Active Substance: VINCRISTINE
     Dosage: UNK, CYCLIC (6 CYCLE, RCHOP CHEMO - DOSE, GASTRO RESISTANT); ; ADDITIONAL INFO: RCHOP CHEMO - DOSE A
     Route: 065
     Dates: end: 20220512
  164. VINCRISTINE [Suspect]
     Active Substance: VINCRISTINE
     Dosage: UNK, CYCLIC (6 CYCLE RCHOP CHEMO DOSE0)
     Route: 065
     Dates: end: 20220512
  165. DOXORUBICIN [Suspect]
     Active Substance: DOXORUBICIN
     Indication: B-cell lymphoma
     Dosage: UNK, RCHOP CHEMO, INJECTION
     Route: 065
     Dates: end: 20220512
  166. DOXORUBICIN [Suspect]
     Active Substance: DOXORUBICIN
     Dosage: UNK, RCHOP CHEMO - DOSE AND EXACT ROUTE NOT KNOWN. UNK, CYCLIC (6 CYCLE, RCHOP CHEMO - DOSE) SOLUTIO
     Route: 065
     Dates: end: 20220512
  167. DOXORUBICIN [Suspect]
     Active Substance: DOXORUBICIN
     Dosage: UNK, RCHOP CHEMO - DOSE AND EXACT ROUTE NOT KNOWN. CYCLIC (6 CYCLE, RCHOP CHEMO - DOSE), INJECTION
     Route: 065
     Dates: end: 20220512
  168. DOXORUBICIN [Suspect]
     Active Substance: DOXORUBICIN
     Dosage: UNK, 1 CYCLICAL, CYCLIC (6 CYCLE, RCHOP CHEMO - DOSE) RCHOP CHEMO - DOSE AND EXACT ROUTE NOT KNOWN,
     Route: 065
     Dates: end: 20220512
  169. DOXORUBICIN [Suspect]
     Active Substance: DOXORUBICIN
     Dosage: UNK, DOSAGE FORM: INJECTION, CYCLIC (6 CYCLE, RCHOP CHEMO - DOSE), RCHOP CHEMO - DOSE AND EXACT ROUT
     Route: 065
  170. DOXORUBICIN [Suspect]
     Active Substance: DOXORUBICIN
     Dosage: UNK, CYCLIC (6 CYCLE, RCHOP CHEMO - DOSE) DOSAGE FORM: INJECTION), SOLUTION FOR INJECTION
     Route: 065
  171. DOXORUBICIN [Suspect]
     Active Substance: DOXORUBICIN
     Dosage: UNK, CYCLIC (6 CYCLE, RCHOP CHEMO - DOSE), INJECTION
     Route: 065
     Dates: end: 20220512
  172. DOXORUBICIN [Suspect]
     Active Substance: DOXORUBICIN
     Dosage: UNK, DOSE:1, CYCLE/ RCHOP CHEMO - DOSE AND EXACT ROUTE NOT KNOWN, CYCLIC (6 CYCLE, RCHOP CHEMO), SOL
     Route: 065
  173. DOXORUBICIN [Suspect]
     Active Substance: DOXORUBICIN
     Dosage: UNK, INJECTION
     Route: 065
  174. DOXORUBICIN [Suspect]
     Active Substance: DOXORUBICIN
     Dosage: UNK,(RCHOP CHEMO - DOSE AND EXACT ROUTE NOT KNOWN), SOLUTION FOR INJECTION
     Route: 065
  175. DOXORUBICIN [Suspect]
     Active Substance: DOXORUBICIN
     Dosage: UNK CYCLIC (6 CYCLE, RCHOP CHEMO - DOSE) DOSAGE FORM: INJECTION; ; ADDITIONAL INFO: RCHOP CHEMO - D,
     Route: 065
     Dates: end: 20220512
  176. DOXORUBICIN [Suspect]
     Active Substance: DOXORUBICIN
     Dosage: UNK, CYCLIC (6 CYCLE RCHOP CHEMO- DOSE AND ROUTE UNKNOWN 12-MAY-2022.), SOLUTION FOR INJECTION
     Route: 065
  177. DOXORUBICIN [Suspect]
     Active Substance: DOXORUBICIN
     Dosage: UNK,MOST RECENT DOSE ON 12-MAY-2022, SOLUTION FOR INJECTION
     Route: 065
     Dates: end: 20220512
  178. DOXORUBICIN [Suspect]
     Active Substance: DOXORUBICIN
     Dosage: UNK, CYCLIC (6 CYCLE, RCHOP CHEMO - DOSE), INJECTION
     Route: 065
     Dates: end: 20220512
  179. DOXORUBICIN [Suspect]
     Active Substance: DOXORUBICIN
     Dosage: UNK UNK, CYCLIC, INJECTION
     Route: 065
     Dates: end: 20220512
  180. DOXORUBICIN [Suspect]
     Active Substance: DOXORUBICIN
     Dosage: UNK, CYCLIC (6 CYCLE, RCHOP CHEMO - DOSE), SOLUTION FOR INJECTION
     Route: 065
     Dates: end: 20220512
  181. DOXORUBICIN [Suspect]
     Active Substance: DOXORUBICIN
     Dosage: UNK (6 CYCLE, RCHOP CHEMO - DOSE) DOSAGE FORM: INJECTION) SOLUTION FOR INJECTION
     Route: 065
  182. DOXORUBICIN [Suspect]
     Active Substance: DOXORUBICIN
     Dosage: UNK, CYCLIC (6 CYCLE, RCHOP CHEMO - DOSE), SOLUTION FOR INJECTION
     Route: 065
  183. DOXORUBICIN [Suspect]
     Active Substance: DOXORUBICIN
     Dosage: UNK,RCHOP CHEMO - DOSE AND EXACT ROUTE NOT KNOWN. CYCLIC (6 CYCLE, RCHOP CHEMO - DOSE), RCHOP CHEMO-
     Route: 065
     Dates: end: 20220512
  184. DOXORUBICIN [Suspect]
     Active Substance: DOXORUBICIN
     Dosage: UNK, RCHOP CHEMO, SOLUTION FOR INJECTION
     Route: 065
     Dates: end: 20220512
  185. DOXORUBICIN [Suspect]
     Active Substance: DOXORUBICIN
     Dosage: UNK, ADDITIONAL INFO: RCHOP CHEMO - DOSE AND EXACT ROUTE NOT KNOWN, SOLUTION FOR INJECTION
     Route: 065
     Dates: end: 20220512
  186. DOXORUBICIN [Suspect]
     Active Substance: DOXORUBICIN
     Dosage: UNK, CYCLIC (6 CYCLE, RCHOP CHEMO - DOSE), RCHOP CHEMO - DOSE AND EXACT ROUTE NOT, INJECTION
     Route: 065
     Dates: end: 20220512
  187. DOXORUBICIN [Suspect]
     Active Substance: DOXORUBICIN
     Dosage: UNK CYCLIC (6 CYCLE, RCHOP CHEMO - DOSE) DOSAGE FORM: INJECTION; ; ADDITIONAL INFO: RCHOP CHEMO - D,
     Route: 065
     Dates: end: 20220512
  188. DOXORUBICIN [Suspect]
     Active Substance: DOXORUBICIN
     Dosage: UNK, RCHOP CHEMO - DOSE AND EXACT ROUTE NOT KNOWN. CYCLIC (6 CYCLE, RCHOP CHEMO - DOSE), RCHOP CHEMO
     Route: 065
     Dates: end: 20220512
  189. DOXORUBICIN [Suspect]
     Active Substance: DOXORUBICIN
     Dosage: UNK (DOSAGE FORM: INJECTION) CYCLIC (6 CYCLE, RCHOP CHEMO - DOSE), RCHOP CHEMO - DOSE AND EXACT ROUT
     Route: 065
     Dates: end: 20220512
  190. DOXORUBICIN [Suspect]
     Active Substance: DOXORUBICIN
     Dosage: UNK, CYCLIC, INJECTION
     Route: 065
  191. DOXORUBICIN [Suspect]
     Active Substance: DOXORUBICIN
     Dosage: UNK, RCHOP CHEMO - DOSE AND EXACT ROUTE NOT KNOWN;/DOSE), MOST RECENT DOSE ON 12-MAY-2022, SOLUTION
     Route: 065
     Dates: end: 20220512
  192. DOXORUBICIN [Suspect]
     Active Substance: DOXORUBICIN
     Dosage: UNK CYCLIC (6 CYCLE, RCHOP CHEMO - DOSE) DOSAGE FORM: INJECTION; ; ADDITIONAL INFO: RCHOP CHEMO - D,
     Route: 065
     Dates: end: 20220512
  193. DOXORUBICIN [Suspect]
     Active Substance: DOXORUBICIN
     Dosage: UNK,RCHOP CHEMO - DOSE AND EXACT ROUTE NOT KNOWN, INJECTION
     Route: 065
     Dates: end: 20220512
  194. DOXORUBICIN [Suspect]
     Active Substance: DOXORUBICIN
     Dosage: UNK, CYCLIC (6 CYCLE, RCHOP CHEMO - DOSE), SOLUTION FOR INJECTION
     Route: 065
     Dates: end: 20220512
  195. DOXORUBICIN [Suspect]
     Active Substance: DOXORUBICIN
     Dosage: UNK,CYCLIC (6 CYCLE, RCHOP CHEMO - DOSE), SOLUTION FOR INJECTION
     Route: 065
     Dates: end: 20220512
  196. DOXORUBICIN [Suspect]
     Active Substance: DOXORUBICIN
     Dosage: UNK, (RCHOP CHEMO - DOSE AND EXACT ROUTE NOT KNOWN), INJECTION
     Route: 065
     Dates: end: 20220512
  197. DOXORUBICIN [Suspect]
     Active Substance: DOXORUBICIN
     Dosage: UNK (MOST RECENT DOSE ON 12-MAY-2022), SOLUTION FOR INJECTION
     Route: 065
     Dates: end: 20220512
  198. DOXORUBICIN [Suspect]
     Active Substance: DOXORUBICIN
     Dosage: UNK, CYCLIC (6 CYCLE RCHOP CHEMO- DOSE AND ROUTE UNKNOWN 12/MAY/2022.); ; ADDITIONAL INFO: RCHOP CHE
     Route: 065
     Dates: end: 20220512
  199. DOXORUBICIN [Suspect]
     Active Substance: DOXORUBICIN
     Dosage: UNK, CYCLIC (6 CYCLE, RCHOP CHEMO - DOSE), INJECTION
     Route: 065
     Dates: end: 20220512
  200. DOXORUBICIN [Suspect]
     Active Substance: DOXORUBICIN
     Dosage: UNK, SOLUTION FOR INJECTION
     Route: 065
  201. DOXORUBICIN [Suspect]
     Active Substance: DOXORUBICIN
     Dosage: UNK CYCLIC (6 CYCLE, RCHOP CHEMO - DOSE) INJECTION
     Route: 065
     Dates: end: 20220512
  202. DOXORUBICIN [Suspect]
     Active Substance: DOXORUBICIN
     Dosage: UNK, RCHOP CHEMO, INJECTION
     Route: 065
     Dates: end: 20220512
  203. DOXORUBICIN [Suspect]
     Active Substance: DOXORUBICIN
     Dosage: UNK, DOSE:1, CYCLE/ RCHOP CHEMO - DOSE AND EXACT ROUTE NOT KNOWN CYCLIC (6 CYCLE, RCHOP CHEMO - DOSE
     Route: 065
     Dates: end: 20220512
  204. DOXORUBICIN [Suspect]
     Active Substance: DOXORUBICIN
     Dosage: UNK, CYCLIC (6 CYCLE RCHOP CHEMO- DOSE AND ROUTE UNKNOWN 12-MAY-2022.), INJECTION
     Route: 065
     Dates: end: 20220512
  205. DOXORUBICIN [Suspect]
     Active Substance: DOXORUBICIN
     Dosage: UNK CYCLIC (6 CYCLE, RCHOP CHEMO - DOSE) INJECTION
     Route: 065
     Dates: end: 20220512
  206. DOXORUBICIN [Suspect]
     Active Substance: DOXORUBICIN
     Dosage: UNK (RCHOP CHEMO - DOSE AND EXACT ROUTE NOT KNOWN); ; ADDITIONAL INFO: RCHOP CHEMO - DOSE AND EXACT
     Route: 065
     Dates: end: 20220512
  207. DOXORUBICIN [Suspect]
     Active Substance: DOXORUBICIN
     Dosage: UNK, CYCLIC; ; ADDITIONAL INFO: RCHOP CHEMO - DOSE AND EXACT ROUTE NOT KNOWN. SOLUTION FOR INJECTION
     Route: 065
     Dates: end: 20220512
  208. DOXORUBICIN [Suspect]
     Active Substance: DOXORUBICIN
     Dosage: UNK, CYCLIC (6 CYCLE, RCHOP CHEMO - DOSE), RCHOP CHEMO - DOSE AND EXACT ROUTE NOT KNOWN; ; ADDITIONA
     Route: 065
     Dates: end: 20220512
  209. DOXORUBICIN [Suspect]
     Active Substance: DOXORUBICIN
     Dosage: UNK, CYCLIC (6 CYCLE, RCHOP CHEMO - DOSE) (DOSAGE FORM: INJECTION), SOLUTION FOR INJECTION
     Route: 065
  210. DOXORUBICIN [Suspect]
     Active Substance: DOXORUBICIN
     Dosage: UNK CYCLIC (6 CYCLE, RCHOP CHEMO - DOSE) DOSAGE FORM: INJECTION; ; ADDITIONAL INFO: RCHOP CHEMO - D,
     Route: 065
     Dates: end: 20220512
  211. DOXORUBICIN [Suspect]
     Active Substance: DOXORUBICIN
     Dosage: UNK, DOSE:1, CYCLE/ RCHOP CHEMO - DOSE AND EXACT ROUTE NOT KNOWN CYCLIC (6 CYCLE, RCHOP CHEMO - DOSE
     Route: 065
     Dates: end: 20220512
  212. DOXORUBICIN [Suspect]
     Active Substance: DOXORUBICIN
     Dosage: UNK, RCHOP CHEMO; ; ADDITIONAL INFO: RCHOP CHEMO - DOSE AND EXACT ROUTE NOT KNOWN, SOLUTION FOR INJE
     Route: 065
     Dates: end: 20220512
  213. DOXORUBICIN [Suspect]
     Active Substance: DOXORUBICIN
     Dosage: UNK, (RCHOP CHEMO - DOSE AND EXACT ROUTE NOT KNOWN), SOLUTION FOR INJECTION
     Route: 065
  214. DOXORUBICIN [Suspect]
     Active Substance: DOXORUBICIN
     Dosage: UNK, MOST RECENT DOSE ON 12-MAY-2022
     Route: 065
     Dates: end: 20220512
  215. PREDNISOLONE [Suspect]
     Active Substance: PREDNISOLONE
     Indication: B-cell lymphoma
     Dosage: UNK RCHOP CHEMO, 6 CYCLES- DOSE AND EXACT ROUTE NOT KNOWN; ; ADDITIONAL INFO: ROUTE:UNKNOWN ROUTE:UN
     Route: 065
     Dates: end: 20220512
  216. PREDNISOLONE [Suspect]
     Active Substance: PREDNISOLONE
     Dosage: UNK, CYCLIC (6 CYCLE, RCHOP CHEMO - DOSE, GASTRO RESISTANT); ; ADDITIONAL INFO: ROUTE: UNKNOWN
     Route: 065
     Dates: end: 20220512
  217. PREDNISOLONE [Suspect]
     Active Substance: PREDNISOLONE
     Dosage: RCHOP CHEMO - DOSE AND EXACT ROUTE NOT KNOWN. ADDITIONAL INFO: ROUTE:UNKNOWN ROUTE: UNKNOWN ROUTE: U
     Route: 042
     Dates: end: 20220512
  218. PREDNISOLONE [Suspect]
     Active Substance: PREDNISOLONE
     Dosage: RCHOP CHEM
     Route: 065
     Dates: end: 20220512
  219. PREDNISOLONE [Suspect]
     Active Substance: PREDNISOLONE
     Dosage: UNK, RCHOP CHEMO; ADDITIONAL INFO: ROUTE: UNKNOWN
     Route: 065
     Dates: end: 20220512
  220. PREDNISOLONE [Suspect]
     Active Substance: PREDNISOLONE
     Dosage: UNK, CYCLIC (6 CYCLE, RCHOP CHEMO - DOSE, GASTRO RESISTANT
     Route: 065
     Dates: end: 20220512
  221. PREDNISOLONE [Suspect]
     Active Substance: PREDNISOLONE
     Dosage: UNK, CYCLIC (6 CYCLE, RCHOP CHEMO - DOSE, GASTRO RESISTANT); ; ADDITIONAL INFO: ROUTE:UNKNOWN ROUTE:
     Route: 065
     Dates: end: 20220512
  222. PREDNISOLONE [Suspect]
     Active Substance: PREDNISOLONE
     Dosage: UNK (RCHOP CHEMO - DOSE AND EXACT ROUTE NOT KNOWN.)
     Route: 065
     Dates: end: 20220512
  223. PREDNISOLONE [Suspect]
     Active Substance: PREDNISOLONE
     Dosage: UNK, RCHOP CHEMO, MOST RECENT DOSE ON 12-MAY-2022
     Route: 065
     Dates: end: 20220512
  224. PREDNISOLONE [Suspect]
     Active Substance: PREDNISOLONE
     Dosage: UNK, CYCLIC (6 CYCLE, RCHOP CHEMO - DOSE, GASTRO RESISTANT)
     Route: 065
     Dates: end: 20220512
  225. PREDNISOLONE [Suspect]
     Active Substance: PREDNISOLONE
     Dosage: UNK UNK, CYCLIC (6 CYCLE, RCHOP CHEMO - DOSE)
     Route: 065
     Dates: end: 20220512
  226. PREDNISOLONE [Suspect]
     Active Substance: PREDNISOLONE
     Dosage: UNK RCHOP CHEMO - DOSE AND EXACT ROUTE NOT KNOWN, ADDITIONAL INFORMATION ON DRUG (FREE TEXT): RCHOP
     Route: 065
     Dates: end: 20220512
  227. PREDNISOLONE [Suspect]
     Active Substance: PREDNISOLONE
     Dosage: UNK UNK, CYCLIC (6 CYCLE, RCHOP CHEMO - DOSE, GASTRO RESISTANT)
     Route: 065
     Dates: end: 20220512
  228. PREDNISOLONE [Suspect]
     Active Substance: PREDNISOLONE
     Dosage: UNK. UNK, CYCLIC
     Route: 065
     Dates: end: 20220512
  229. PREDNISOLONE [Suspect]
     Active Substance: PREDNISOLONE
     Dosage: RCHOP CHEMO, MOST RECENT DOSE ON 12- MAY-2022, ADDITIONAL INFORMATION ON DRUG (FREE TEXT): RCHOP CHE
     Route: 065
     Dates: end: 20220512
  230. PREDNISOLONE [Suspect]
     Active Substance: PREDNISOLONE
     Dosage: UNK UNK, CYCLIC (6 CYCLE, RCHOP CHEMO - DOSE AND EXACT ROUTE NOT KNOWN, CYCLIC (6 CYCLE,
     Route: 065
     Dates: end: 20220512
  231. PREDNISOLONE [Suspect]
     Active Substance: PREDNISOLONE
     Dosage: UNK UNK, CYCLIC (6 CYCLE, RCHOP CHEMO - DOSE)
     Route: 065
     Dates: end: 20220512
  232. PREDNISOLONE [Suspect]
     Active Substance: PREDNISOLONE
     Dosage: CYCLIC,6 CYCLE, RCHOP CHEMODOSE,GASTRO RESISTANT (RCHOP CHEMO - DOSE AND EXACT ROUTE NOT KNOWN.)
     Route: 065
     Dates: end: 20220512
  233. PREDNISOLONE [Suspect]
     Active Substance: PREDNISOLONE
     Dosage: UNK, CYCLIC (6 CYCLE, RCHOP CHEMO - DOSE, GASTRO RESISTANT); ; ADDITIONAL INFO: ROUTE:UNKNOWN ROUTE:
     Route: 065
     Dates: end: 20220512
  234. PREDNISOLONE [Suspect]
     Active Substance: PREDNISOLONE
     Dosage: UNK RCHOP CHEMO - DOSE AND EXACT ROUTE NOT KNOWN.
     Route: 065
     Dates: end: 20220512
  235. PREDNISOLONE [Suspect]
     Active Substance: PREDNISOLONE
     Dosage: ADDITIONAL INFO: ROUTE:UNKNOWN ROUTE:UNKNOWN ROUTE:UNKNOWN ROUTE:UNKNOWN ROUTE:UNKNOWNRCHOP CHEMO...
     Route: 065
     Dates: end: 20220512
  236. PREDNISOLONE [Suspect]
     Active Substance: PREDNISOLONE
     Dosage: UNK, CYCLIC (6 CYCLE, RCHOP CHEMO - DOSE, GASTRO RESISTANT)
     Route: 065
     Dates: end: 20220512
  237. PREDNISOLONE [Suspect]
     Active Substance: PREDNISOLONE
     Dosage: UNK RCHOP CHEMO, 6 CYCLES- DOSE AND EXACT ROUTE NOT KNOWN; ; ADDITIONAL INFO: ROUTE:UNKNOWN ROUTE:UN
     Route: 065
     Dates: end: 20220512
  238. PREDNISOLONE [Suspect]
     Active Substance: PREDNISOLONE
     Dosage: UNK (RCHOP CHEMO)
     Route: 065
     Dates: end: 20220512
  239. PREDNISOLONE [Suspect]
     Active Substance: PREDNISOLONE
     Dosage: UNK RCHOP CHEMO - DOSE AND EXACT ROUTE NOT KNOWN
     Route: 065
     Dates: end: 20220512
  240. PREDNISOLONE [Suspect]
     Active Substance: PREDNISOLONE
     Dosage: UNK (RCHOP CHEMO - DOSE AND EXACT ROUTE NOT KNOWN.)
     Route: 065
     Dates: end: 20220512
  241. PREDNISOLONE [Suspect]
     Active Substance: PREDNISOLONE
     Dosage: UNK, CYCLIC (6 CYCLE, RCHOP CHEMO - DOSE, GASTRO RESISTANT)
     Route: 065
     Dates: end: 20220512
  242. PREDNISOLONE [Suspect]
     Active Substance: PREDNISOLONE
     Dosage: UNK, CYCLIC (6 CYCLE, RCHOP CHEMO - DOSE, GASTRO RESISTANT); ; ADDITIONAL INFO: ROUTE:UNKNOWN ROUTE:
     Route: 065
     Dates: end: 20220512
  243. PREDNISOLONE [Suspect]
     Active Substance: PREDNISOLONE
     Dosage: RCHOP CHEMO; ADDITIONAL INFO: ROUTE:UNKNOWN ROUTE:UNKNOWN ROUTE:UNKNOWN ROUTE:UNKNOWN ROUTE:UNKNOWNR
     Route: 065
     Dates: end: 20220512
  244. PREDNISOLONE [Suspect]
     Active Substance: PREDNISOLONE
     Dosage: RCHOP CHEMO - DOSE AND EXACT ROUTE NOT KNOWN. ADDITIONAL INFO: ROUTE:UNKN
     Route: 065
     Dates: end: 20220512
  245. PREDNISOLONE [Suspect]
     Active Substance: PREDNISOLONE
     Dosage: UNK, CYCLIC (6 CYCLE, RCHOP CHEMO - DOSE, GASTRO RESISTANT
     Route: 065
     Dates: end: 20220512
  246. PREDNISOLONE [Suspect]
     Active Substance: PREDNISOLONE
     Dosage: UNK (RCHOP CHEMO - DOSE AND EXACT ROUTE NOT KNOWN)?G.K.4.R.9.1 PHARMACEUTICAL DOSE FORM (FREE TEXT
     Route: 065
     Dates: end: 20220512
  247. PREDNISOLONE [Suspect]
     Active Substance: PREDNISOLONE
     Dosage: UNK, CYCLIC (6 CYCLE, RCHOP CHEMO - DOSE, GASTRO RESISTANT)
     Route: 065
     Dates: end: 20220512
  248. PREDNISOLONE [Suspect]
     Active Substance: PREDNISOLONE
     Dosage: RCHOP CHEMO, MOST RECENT DOSE ON 12/MAY/2022
     Route: 065
     Dates: end: 20220512

REACTIONS (10)
  - Off label use [Unknown]
  - Balance disorder [Unknown]
  - Lethargy [Unknown]
  - Back pain [Unknown]
  - Disease progression [Unknown]
  - Confusional state [Unknown]
  - Abnormal behaviour [Unknown]
  - Condition aggravated [Unknown]
  - Dysarthria [Unknown]
  - Cerebellar syndrome [Unknown]

NARRATIVE: CASE EVENT DATE: 20220514
